FAERS Safety Report 17588920 (Version 2)
Quarter: 2020Q2

REPORT INFORMATION
  Report Type: Spontaneous
  Country: DE (occurrence: DE)
  Receive Date: 20200327
  Receipt Date: 20200507
  Transmission Date: 20200713
  Serious: Yes (Other)
  Sender: FDA-Public Use
  Company Number: DE-SUN PHARMACEUTICAL INDUSTRIES LTD-2020R1-241509

PATIENT
  Age: 81 Year
  Sex: Male

DRUGS (7)
  1. RITUXIMAB. [Suspect]
     Active Substance: RITUXIMAB
     Route: 065
  2. PREDNISOLONE. [Suspect]
     Active Substance: PREDNISOLONE
     Indication: DIFFUSE LARGE B-CELL LYMPHOMA
     Dosage: 100 MILLIGRAM, DAILY, MODIFIED R-CHOP REGIMEN IN 100 PERCENT DOSING
  3. RITUXIMAB. [Suspect]
     Active Substance: RITUXIMAB
     Indication: DIFFUSE LARGE B-CELL LYMPHOMA
     Dosage: MODIFIED R-CHOP REGIMEN WAS ADMINISTERED IN 75 PERCENT DOSE REDUCTION; 4 COURSES
     Route: 065
  4. RITUXIMAB. [Suspect]
     Active Substance: RITUXIMAB
     Route: 065
  5. VINCRISTINE [Suspect]
     Active Substance: VINCRISTINE
     Indication: DIFFUSE LARGE B-CELL LYMPHOMA
     Dosage: MODIFIED R-CHOP REGIMEN WAS ADMINISTERED IN MONTHLY INTERVALS
     Route: 065
  6. CYCLOPHOPHAMIDE [Suspect]
     Active Substance: CYCLOPHOSPHAMIDE
     Indication: DIFFUSE LARGE B-CELL LYMPHOMA
     Dosage: MODIFIED R-CHOP REGIMEN WAS ADMINISTERED IN MONTHLY INTERVALS
     Route: 065
  7. DOXORUBICIN [Suspect]
     Active Substance: DOXORUBICIN
     Indication: DIFFUSE LARGE B-CELL LYMPHOMA
     Dosage: ,MODIFIED R-CHOP REGIMEN IN 100  PERCENT 20 MILLIGRAM/SQ. METER
     Route: 065

REACTIONS (8)
  - Disease progression [Unknown]
  - Leukopenia [Unknown]
  - Agitation [Unknown]
  - Toxicity to various agents [Not Recovered/Not Resolved]
  - Thrombosis [Unknown]
  - Extravasation [Unknown]
  - Headache [Unknown]
  - Dizziness [Unknown]
